FAERS Safety Report 16785431 (Version 1)
Quarter: 2019Q3

REPORT INFORMATION
  Report Type: Spontaneous
  Country: US (occurrence: US)
  Receive Date: 20190909
  Receipt Date: 20190909
  Transmission Date: 20191005
  Serious: Yes (Other)
  Sender: FDA-Public Use
  Company Number: US-SA-2019SA250674

PATIENT
  Sex: Female

DRUGS (24)
  1. SPIRIVA [Concomitant]
     Active Substance: TIOTROPIUM BROMIDE MONOHYDRATE
  2. COENZYME Q10 [Concomitant]
     Active Substance: UBIDECARENONE
  3. VITAMIN B12 [Concomitant]
     Active Substance: CYANOCOBALAMIN
  4. LOSARTAN POTASSIUM. [Concomitant]
     Active Substance: LOSARTAN POTASSIUM
  5. DUPIXENT [Suspect]
     Active Substance: DUPILUMAB
     Indication: ASTHMA
     Dosage: 600 MG, 1X
     Route: 058
  6. DUPIXENT [Suspect]
     Active Substance: DUPILUMAB
     Dosage: 300 MG, QOW
     Route: 058
  7. TYLENOL ARTHRITIS PAIN [Concomitant]
     Active Substance: ACETAMINOPHEN
  8. SPIRIVA RESPIMAT [Concomitant]
     Active Substance: TIOTROPIUM BROMIDE
  9. PRAVASTATIN. [Concomitant]
     Active Substance: PRAVASTATIN
  10. METOPROLOL TARTRATE. [Concomitant]
     Active Substance: METOPROLOL TARTRATE
  11. VITAMIN D2 [Concomitant]
     Active Substance: ERGOCALCIFEROL
  12. LINZESS [Concomitant]
     Active Substance: LINACLOTIDE
  13. ALLERGY RELIEF [CETIRIZINE HYDROCHLORIDE] [Concomitant]
  14. PREDNISONE. [Concomitant]
     Active Substance: PREDNISONE
  15. MONTELUKAST [Concomitant]
     Active Substance: MONTELUKAST SODIUM
  16. COLACE [Concomitant]
     Active Substance: DOCUSATE SODIUM
  17. NASOGEL [Concomitant]
  18. ELIQUIS [Concomitant]
     Active Substance: APIXABAN
  19. AMLODIPINE BESILATE [Concomitant]
     Active Substance: AMLODIPINE BESYLATE
  20. CALTRATE [Concomitant]
     Active Substance: CALCIUM CARBONATE
  21. MELATONIN [Concomitant]
     Active Substance: MELATONIN
  22. PROBIOTICS NOS [Concomitant]
     Active Substance: PROBIOTICS NOS
  23. RANITIDINE. [Concomitant]
     Active Substance: RANITIDINE
  24. AMITIZA [Concomitant]
     Active Substance: LUBIPROSTONE

REACTIONS (1)
  - Shock [Unknown]
